FAERS Safety Report 4531528-1 (Version None)
Quarter: 2004Q4

REPORT INFORMATION
  Report Type: 
  Country: None (occurrence: None)
  Receive Date: 20041220
  Receipt Date: 20041208
  Transmission Date: 20050328
  Serious: Yes (Other)
  Sender: FDA-Public Use
  Company Number: US-JNJFOC-20040808578

PATIENT
  Sex: Male
  Weight: 79.38 kg

DRUGS (31)
  1. REMICADE [Suspect]
     Dosage: 8 MG/KG X 75 KG = 600 MG IN 250 CC NSS
     Route: 042
  2. REMICADE [Suspect]
     Dosage: 8 MG/KG X 75 KG = 600 MG IN 250 CC NSS
     Route: 042
  3. REMICADE [Suspect]
     Dosage: 5 MG/KG X 80 KG = 400 MG IN 250 CC NSS
     Route: 042
  4. REMICADE [Suspect]
     Indication: CROHN'S DISEASE
     Dosage: 8 MG/KG X 75 KG = 600 MG IN 250 CC NSS
     Route: 042
  5. ASACOL [Concomitant]
     Route: 049
  6. PERCOCET [Concomitant]
     Route: 049
  7. PERCOCET [Concomitant]
     Route: 049
  8. FOLIC ACID [Concomitant]
     Route: 049
  9. LORAZEPAM [Concomitant]
     Dosage: 0.5 MG, 2 TABLETS DAILY AT BEDTIME, AS NECESSARY.
     Route: 049
  10. VITAMIN C [Concomitant]
     Route: 049
  11. VITAMIN B-12 [Concomitant]
     Route: 049
  12. IRON [Concomitant]
     Route: 049
  13. MULTI-VITAMIN [Concomitant]
     Route: 049
  14. MULTI-VITAMIN [Concomitant]
     Route: 049
  15. MULTI-VITAMIN [Concomitant]
     Route: 049
  16. MULTI-VITAMIN [Concomitant]
     Route: 049
  17. MULTI-VITAMIN [Concomitant]
     Route: 049
  18. MULTI-VITAMIN [Concomitant]
     Route: 049
  19. MULTI-VITAMIN [Concomitant]
     Route: 049
  20. MULTI-VITAMIN [Concomitant]
     Route: 049
  21. NASONEX [Concomitant]
     Route: 045
  22. PLAQUENIL [Concomitant]
     Route: 049
  23. FOSAMAX [Concomitant]
     Route: 049
  24. SOTALOL HCL [Concomitant]
     Route: 049
  25. COLCHICINE [Concomitant]
  26. PREDNISONE [Concomitant]
     Route: 049
  27. PRILOSEC [Concomitant]
     Route: 049
  28. WELLBUTRIN [Concomitant]
  29. METHOTREXATE [Concomitant]
  30. ZYRTEC [Concomitant]
     Dosage: 10 MG PRIOR TO INFLIXIMAB INFUSION.
     Route: 049
  31. TYLENOL (CAPLET) [Concomitant]
     Dosage: 650 MG PRIOR TO INFLIXIMAB INFUSION.
     Route: 049

REACTIONS (12)
  - ANTINUCLEAR ANTIBODY POSITIVE [None]
  - ARTHRALGIA [None]
  - ATRIAL FIBRILLATION [None]
  - DEPRESSION [None]
  - DOUBLE STRANDED DNA ANTIBODY [None]
  - DRUG HYPERSENSITIVITY [None]
  - HISTONE ANTIBODY POSITIVE [None]
  - PERICARDIAL EFFUSION [None]
  - PERICARDITIS [None]
  - PLEURAL EFFUSION [None]
  - POLYARTHRITIS [None]
  - SYSTEMIC LUPUS ERYTHEMATOSUS [None]
